FAERS Safety Report 6170711-9 (Version None)
Quarter: 2009Q2

REPORT INFORMATION
  Report Type: 
  Country: None (occurrence: None)
  Receive Date: 20090428
  Receipt Date: 20090427
  Transmission Date: 20091009
  Serious: Yes (Other)
  Sender: FDA-Public Use
  Company Number: US-ALLERGAN-0905751US

PATIENT
  Sex: Female

DRUGS (8)
  1. BOTOX [Suspect]
     Indication: TORTICOLLIS
     Dosage: 300 UNITS, SINGLE
     Route: 030
     Dates: start: 20090408, end: 20090408
  2. BOTOX [Suspect]
     Dosage: 200 UNITS, UNK
     Route: 030
  3. PROVIGIL [Concomitant]
     Dosage: 200 MG, BID
  4. EFFEXOR [Concomitant]
     Dosage: 150, QD
  5. ESTRACE [Concomitant]
     Dosage: 2 MG, QD
  6. PERCOCET [Concomitant]
     Dosage: 10 MG, Q4HR AS NEEDED
  7. AMBIEN [Concomitant]
     Dosage: 12.5 MG, QD
  8. KLONOPIN [Concomitant]
     Dosage: 1 MG, QD

REACTIONS (5)
  - APHONIA [None]
  - DYSPHAGIA [None]
  - HEADACHE [None]
  - MUSCULAR WEAKNESS [None]
  - NECK PAIN [None]
